FAERS Safety Report 5256528-8 (Version None)
Quarter: 2007Q1

REPORT INFORMATION
  Report Type: 
  Country: None (occurrence: None)
  Receive Date: 20061220
  Receipt Date: 20061030
  Transmission Date: 20070707
  Serious: No
  Sender: FDA-Public Use
  Company Number: 2006RL000394

PATIENT
  Age: 68 Year
  Sex: Female

DRUGS (6)
  1. OMACOR [Suspect]
     Indication: BLOOD TRIGLYCERIDES INCREASED
     Dosage: 1 GM; QD; PO
     Route: 048
     Dates: start: 20060901
  2. PLAVIX [Concomitant]
  3. ECOTRIN [Concomitant]
  4. PREVACID [Concomitant]
  5. XANAX [Concomitant]
  6. MIACALCIN [Concomitant]

REACTIONS (1)
  - OEDEMA PERIPHERAL [None]
